FAERS Safety Report 5662771-6 (Version None)
Quarter: 2008Q1

REPORT INFORMATION
  Report Type: 
  Country: None (occurrence: None)
  Receive Date: 20080312
  Receipt Date: 20080304
  Transmission Date: 20080703
  Serious: Yes (Hospitalization)
  Sender: FDA-Public Use
  Company Number: APP200800180

PATIENT
  Age: 29 Year
  Sex: Female

DRUGS (4)
  1. HEPARIN SODIUM INJECTION [Suspect]
     Indication: DRUG USE FOR UNKNOWN INDICATION
     Dosage: 20000 USP UNITS(10000 USP, 2 IN 1 D), SUBCUTANEOUS
     Route: 058
     Dates: start: 20080210, end: 20080219
  2. HEPARIN [Suspect]
     Indication: DRUG USE FOR UNKNOWN INDICATION
     Dosage: 20000 USP UNITS (10000 USP UNITS, 2 IN 1 D),SUBCUTANEOUS
     Route: 057
     Dates: start: 20071206, end: 20080209
  3. HEPARIN [Suspect]
  4. LOVENOX [Concomitant]

REACTIONS (5)
  - DRUG EXPOSURE DURING PREGNANCY [None]
  - DRUG INEFFECTIVE [None]
  - DRY SKIN [None]
  - RASH PRURITIC [None]
  - SKIN BURNING SENSATION [None]
